FAERS Safety Report 21104686 (Version 1)
Quarter: 2022Q3

REPORT INFORMATION
  Report Type: Spontaneous
  Country: CA (occurrence: CA)
  Receive Date: 20220720
  Receipt Date: 20220720
  Transmission Date: 20221027
  Serious: Yes (Death)
  Sender: FDA-Public Use
  Company Number: CA-PFIZER INC-2019009356

PATIENT
  Age: 58 Year
  Sex: Female
  Weight: 93.878 kg

DRUGS (26)
  1. REVATIO [Suspect]
     Active Substance: SILDENAFIL CITRATE
     Indication: Pulmonary hypertension
     Dosage: 20 MG, THREE TIMES A DAY
     Route: 048
     Dates: start: 20181228
  2. FUROSEMIDE [Concomitant]
     Active Substance: FUROSEMIDE
  3. HYDROMORPHONE [Concomitant]
     Active Substance: HYDROMORPHONE
  4. SPIRIVA [Concomitant]
     Active Substance: TIOTROPIUM BROMIDE MONOHYDRATE
     Route: 055
  5. PREDNISONE [Concomitant]
     Active Substance: PREDNISONE
     Dosage: 3 TABLETS
  6. JAMP ALENDRONATE [Concomitant]
     Dosage: 70 MG, WEEKLY
  7. CONCERTA [Concomitant]
     Active Substance: METHYLPHENIDATE HYDROCHLORIDE
     Dosage: 36 MG
  8. PMS TRANDOLAPRIL [Concomitant]
     Dosage: 2 MG, DAILY (AM)
  9. VENLAFAXINE HYDROCHLORIDE [Concomitant]
     Active Substance: VENLAFAXINE HYDROCHLORIDE
  10. FLUTICASONE FUROATE [Concomitant]
     Active Substance: FLUTICASONE FUROATE
  11. PMS CLONAZEPAM [Concomitant]
  12. JAMP CALCIUM [Concomitant]
     Dosage: 500 MG D 400IU
  13. DILTIAZEM HYDROCHLORIDE [Concomitant]
     Active Substance: DILTIAZEM HYDROCHLORIDE
  14. VENLAFAXINE HYDROCHLORIDE [Concomitant]
     Active Substance: VENLAFAXINE HYDROCHLORIDE
  15. ASPIRIN [Concomitant]
     Active Substance: ASPIRIN
  16. APC-CETIRIZINE [Concomitant]
  17. JAMP RANITIDINE [Concomitant]
  18. JAMP-PANTOPRAZOLE [Concomitant]
  19. NOVO SALBUTAMOL HFA [Concomitant]
  20. ESTRACE [Concomitant]
     Active Substance: ESTRADIOL
  21. MEDROXYPROGESTERONE ACETATE [Concomitant]
     Active Substance: MEDROXYPROGESTERONE ACETATE
  22. DOM-CYCLOBENZAPRINE [Concomitant]
  23. ACETAMINOPHEN [Concomitant]
     Active Substance: ACETAMINOPHEN
  24. THRIVE COMPLETE [Concomitant]
  25. JAMP SOLIFENACIN [Concomitant]
  26. TOPICORT [Concomitant]
     Active Substance: DESOXIMETASONE

REACTIONS (4)
  - Death [Fatal]
  - Fatigue [Not Recovered/Not Resolved]
  - Bronchitis [Recovered/Resolved]
  - Disease recurrence [Recovered/Resolved]

NARRATIVE: CASE EVENT DATE: 20181228
